FAERS Safety Report 13138749 (Version 1)
Quarter: 2017Q1

REPORT INFORMATION
  Report Type: Spontaneous
  Country: US (occurrence: US)
  Receive Date: 20170123
  Receipt Date: 20170123
  Transmission Date: 20170428
  Serious: No
  Sender: FDA-Public Use
  Company Number: US-PFIZER INC-2017022661

PATIENT
  Age: 64 Year
  Sex: Female

DRUGS (11)
  1. GABAPENTIN. [Suspect]
     Active Substance: GABAPENTIN
     Dosage: UNK
  2. HYDROCHLOROTHIAZIDE. [Concomitant]
     Active Substance: HYDROCHLOROTHIAZIDE
     Dosage: UNK
  3. IMODIUM [Concomitant]
     Active Substance: LOPERAMIDE HYDROCHLORIDE
     Dosage: UNK
  4. NEXIUM [Concomitant]
     Active Substance: ESOMEPRAZOLE MAGNESIUM
     Dosage: UNK
  5. DOXEPIN [Concomitant]
     Active Substance: DOXEPIN
     Dosage: UNK
  6. OMEGA 3 [Concomitant]
     Active Substance: OMEGA-3 FATTY ACIDS
     Dosage: UNK
  7. VITAMIN D [Concomitant]
     Active Substance: CHOLECALCIFEROL
     Dosage: UNK
  8. IBUPROFEN. [Concomitant]
     Active Substance: IBUPROFEN
     Dosage: UNK
  9. JAKAFI [Suspect]
     Active Substance: RUXOLITINIB
     Indication: MYELOFIBROSIS
     Dosage: 20 MG, 2X/DAY
     Route: 048
     Dates: start: 20161209
  10. CYMBALTA [Concomitant]
     Active Substance: DULOXETINE HYDROCHLORIDE
     Dosage: UNK
  11. IRON [Concomitant]
     Active Substance: IRON
     Dosage: UNK

REACTIONS (6)
  - Somnolence [Unknown]
  - Oropharyngeal pain [Unknown]
  - Fatigue [Unknown]
  - Back pain [Unknown]
  - Aphonia [Unknown]
  - Muscular weakness [Unknown]

NARRATIVE: CASE EVENT DATE: 201612
